FAERS Safety Report 4341527-0 (Version None)
Quarter: 2004Q2

REPORT INFORMATION
  Report Type: 
  Country: None (occurrence: None)
  Receive Date: 20040420
  Receipt Date: 20040408
  Transmission Date: 20050107
  Serious: Yes (Hospitalization, Other)
  Sender: FDA-Public Use
  Company Number: 200412847US

PATIENT
  Sex: Female

DRUGS (12)
  1. ARAVA [Suspect]
     Indication: RHEUMATOID ARTHRITIS
     Dates: start: 20010307, end: 20010621
  2. PULMICORT [Concomitant]
     Dosage: DOSE: 2 PUFFS
  3. PRAVACHOL [Concomitant]
  4. ACCUPRIL [Concomitant]
  5. BUMEX [Concomitant]
  6. ASPIRIN [Concomitant]
  7. PREMARIN [Concomitant]
  8. VIOXX                                   /USA/ [Concomitant]
  9. GLUCOVANCE [Concomitant]
     Dosage: DOSE: 2.5/500
  10. PREDNISONE [Concomitant]
  11. METHOTREXATE [Concomitant]
  12. DYNACIRC [Concomitant]

REACTIONS (11)
  - ASTHENIA [None]
  - BLOOD GLUCOSE FLUCTUATION [None]
  - DIABETES MELLITUS INADEQUATE CONTROL [None]
  - DIZZINESS [None]
  - ELECTROLYTE IMBALANCE [None]
  - HEPATIC CIRRHOSIS [None]
  - HEPATIC STEATOSIS [None]
  - HYPOMAGNESAEMIA [None]
  - HYPONATRAEMIA [None]
  - SEPSIS [None]
  - WHITE BLOOD CELL COUNT INCREASED [None]
